FAERS Safety Report 5499324-9 (Version None)
Quarter: 2007Q4

REPORT INFORMATION
  Report Type: 
  Country: None (occurrence: None)
  Receive Date: 20071024
  Receipt Date: 20071015
  Transmission Date: 20080405
  Serious: Yes (Hospitalization)
  Sender: FDA-Public Use
  Company Number: 2007-162972-NL

PATIENT
  Age: 33 Year
  Sex: Female

DRUGS (2)
  1. ETONOGESTREL (BATCH #: 692098/693616) [Suspect]
     Indication: CONTRACEPTION
     Dosage: DF
     Dates: start: 20050620, end: 20070730
  2. MEDROXYPROGESTERONE ACETATE [Suspect]
     Dosage: DF

REACTIONS (3)
  - FEMUR FRACTURE [None]
  - OSTEOPOROSIS [None]
  - STRESS FRACTURE [None]
